FAERS Safety Report 7710134-1 (Version None)
Quarter: 2011Q3

REPORT INFORMATION
  Report Type: 
  Country: None (occurrence: None)
  Receive Date: 20110825
  Receipt Date: 20110816
  Transmission Date: 20111222
  Serious: Yes (Hospitalization, Other)
  Sender: FDA-Public Use
  Company Number: US-BAYER-2011-013497

PATIENT
  Age: 24 Year
  Sex: Female
  Weight: 46.259 kg

DRUGS (3)
  1. YAZ [Suspect]
     Indication: ORAL CONTRACEPTION
     Dosage: UNK
     Dates: start: 20080301, end: 20090301
  2. NSAID'S [Concomitant]
     Dosage: UNK UNK, PRN
  3. PROZAC [Concomitant]
     Indication: DEPRESSION
     Dosage: UNK
     Dates: start: 20090215

REACTIONS (8)
  - PAIN [None]
  - EMOTIONAL DISTRESS [None]
  - ANXIETY [None]
  - PROCEDURAL PAIN [None]
  - DYSPEPSIA [None]
  - VOMITING [None]
  - FEAR [None]
  - CHOLECYSTITIS [None]
